FAERS Safety Report 25671801 (Version 1)
Quarter: 2025Q3

REPORT INFORMATION
  Report Type: Spontaneous
  Country: US (occurrence: US)
  Receive Date: 20250812
  Receipt Date: 20250812
  Transmission Date: 20251021
  Serious: Yes (Other)
  Sender: NOVARTIS
  Company Number: US-002147023-NVSC2025US124309

PATIENT
  Sex: Male

DRUGS (4)
  1. TAFINLAR [Suspect]
     Active Substance: DABRAFENIB MESYLATE
     Indication: Anaplastic thyroid cancer
     Dosage: 150 MG, BID
     Route: 065
     Dates: start: 202505
  2. TAFINLAR [Suspect]
     Active Substance: DABRAFENIB MESYLATE
     Indication: Metastases to lung
  3. MEKINIST [Suspect]
     Active Substance: TRAMETINIB DIMETHYL SULFOXIDE
     Indication: Anaplastic thyroid cancer
     Dosage: 2 MG, QD
     Route: 065
  4. MEKINIST [Suspect]
     Active Substance: TRAMETINIB DIMETHYL SULFOXIDE
     Indication: Metastases to lung

REACTIONS (5)
  - Anaplastic thyroid cancer [Not Recovered/Not Resolved]
  - Metastases to lung [Not Recovered/Not Resolved]
  - Condition aggravated [Not Recovered/Not Resolved]
  - Speech disorder [Unknown]
  - General physical health deterioration [Not Recovered/Not Resolved]
